FAERS Safety Report 5325858-3 (Version None)
Quarter: 2007Q2

REPORT INFORMATION
  Report Type: 
  Country: None (occurrence: None)
  Receive Date: 20070510
  Receipt Date: 20070426
  Transmission Date: 20071010
  Serious: Yes (Hospitalization)
  Sender: FDA-Public Use
  Company Number: ALK_00203_2007

PATIENT
  Sex: Male
  Weight: 86.1834 kg

DRUGS (2)
  1. VIVITROL [Suspect]
     Indication: ALCOHOLISM
     Dosage: 380 MG 1X/MONTY INTRAMUSCULAR
     Route: 030
     Dates: start: 20070101
  2. CAFFEINE [Concomitant]

REACTIONS (3)
  - ALCOHOL POISONING [None]
  - ATRIAL FIBRILLATION [None]
  - TREATMENT NONCOMPLIANCE [None]
